FAERS Safety Report 13117205 (Version 9)
Quarter: 2018Q1

REPORT INFORMATION
  Report Type: Spontaneous
  Country: US (occurrence: US)
  Receive Date: 20170116
  Receipt Date: 20180118
  Transmission Date: 20180508
  Serious: No
  Sender: FDA-Public Use
  Company Number: US-TAKEDA-2017MPI000223

PATIENT
  Age: 81 Year
  Sex: Female

DRUGS (13)
  1. OMEPRAZOLE. [Concomitant]
     Active Substance: OMEPRAZOLE
     Dosage: UNK
     Route: 065
  2. VITAMIN B6 [Concomitant]
     Active Substance: PYRIDOXINE HYDROCHLORIDE
     Dosage: UNK
     Route: 065
  3. NINLARO [Suspect]
     Active Substance: IXAZOMIB CITRATE
     Indication: PLASMA CELL MYELOMA
     Dosage: 4 MG, 1/WEEK
     Route: 048
     Dates: start: 20161206
  4. REVLIMID [Concomitant]
     Active Substance: LENALIDOMIDE
     Dosage: 25 MG, UNK
     Route: 065
  5. ASPIRIN                            /00002701/ [Concomitant]
     Active Substance: ASPIRIN
     Dosage: UNK
     Route: 065
  6. ONE DAILY WOMEN^S [Concomitant]
     Route: 065
  7. REVLIMID [Concomitant]
     Active Substance: LENALIDOMIDE
     Dosage: 15 MG, UNK
     Route: 065
  8. TYLENOL [Concomitant]
     Active Substance: ACETAMINOPHEN
     Dosage: UNK
     Route: 065
  9. IOPHEN-C NR [Concomitant]
     Active Substance: CODEINE PHOSPHATE\GUAIFENESIN
     Dosage: UNK
     Route: 065
  10. PROCHLORPERAZINE MALEATE. [Concomitant]
     Active Substance: PROCHLORPERAZINE MALEATE
     Dosage: UNK
     Route: 065
  11. DEXAMETHASONE. [Suspect]
     Active Substance: DEXAMETHASONE
     Indication: PRODUCT USED FOR UNKNOWN INDICATION
     Dosage: UNK
     Route: 065
  12. MAGNESIUM GLUCONATE [Concomitant]
     Active Substance: MAGNESIUM GLUCONATE
     Dosage: UNK, QD
     Route: 065
  13. VALACYCLOVIR HCL [Concomitant]
     Active Substance: VALACYCLOVIR HYDROCHLORIDE
     Dosage: UNK
     Route: 065

REACTIONS (8)
  - Laboratory test abnormal [Unknown]
  - Hypoaesthesia [Not Recovered/Not Resolved]
  - Diarrhoea [Unknown]
  - Nasopharyngitis [Unknown]
  - Vomiting [Unknown]
  - Influenza [Unknown]
  - Gastric disorder [Unknown]
  - Peripheral swelling [Unknown]

NARRATIVE: CASE EVENT DATE: 20171228
